FAERS Safety Report 14925443 (Version 1)
Quarter: 2018Q2

REPORT INFORMATION
  Report Type: Spontaneous
  Country: BR (occurrence: BR)
  Receive Date: 20180522
  Receipt Date: 20180522
  Transmission Date: 20180711
  Serious: Yes (Other)
  Sender: FDA-Public Use
  Company Number: PHHY2018BR004522

PATIENT
  Sex: Female
  Weight: 76 kg

DRUGS (2)
  1. OLCADIL [Suspect]
     Active Substance: CLOXAZOLAM
     Indication: ANXIETY
     Dosage: 1 MG, QD
     Route: 048
     Dates: end: 201803
  2. ALPRAZOLAM. [Suspect]
     Active Substance: ALPRAZOLAM
     Indication: PRODUCT USED FOR UNKNOWN INDICATION
     Dosage: UNK
     Route: 065

REACTIONS (9)
  - Abdominal pain upper [Unknown]
  - Rheumatoid arthritis [Not Recovered/Not Resolved]
  - Hypersomnia [Not Recovered/Not Resolved]
  - Malaise [Unknown]
  - Dyspnoea [Unknown]
  - Hiccups [Unknown]
  - Anxiety [Not Recovered/Not Resolved]
  - Throat tightness [Unknown]
  - Drug ineffective [Unknown]

NARRATIVE: CASE EVENT DATE: 2016
